FAERS Safety Report 5670149-4 (Version None)
Quarter: 2008Q1

REPORT INFORMATION
  Report Type: 
  Country: None (occurrence: None)
  Receive Date: 20080312
  Receipt Date: 20080228
  Transmission Date: 20080703
  Serious: Yes (Other)
  Sender: FDA-Public Use
  Company Number: 18480

PATIENT
  Sex: Female

DRUGS (3)
  1. METHOTREXATE [Suspect]
  2. CYTARABINE [Suspect]
  3. ETOPOSIDE [Suspect]

REACTIONS (2)
  - ASTHENIA [None]
  - TACHYCARDIA [None]
